FAERS Safety Report 14303329 (Version 2)
Quarter: 2018Q1

REPORT INFORMATION
  Report Type: Spontaneous
  Country: US (occurrence: US)
  Receive Date: 20171219
  Receipt Date: 20180314
  Transmission Date: 20180509
  Serious: Yes (Hospitalization, Other)
  Sender: FDA-Public Use
  Company Number: US-OTSUKA-2015_009848

PATIENT
  Sex: Female

DRUGS (2)
  1. ABILIFY MAINTENA [Suspect]
     Active Substance: ARIPIPRAZOLE
     Indication: BIPOLAR DISORDER
     Dosage: UNK
     Route: 030
     Dates: start: 201505
  2. ABILIFY [Suspect]
     Active Substance: ARIPIPRAZOLE
     Indication: BIPOLAR DISORDER
     Dosage: UNK
     Route: 048
     Dates: start: 201505

REACTIONS (7)
  - Depression [Unknown]
  - Injury [Unknown]
  - Drug ineffective [Unknown]
  - Mania [Unknown]
  - Suicidal ideation [Unknown]
  - Bipolar disorder [Unknown]
  - Anxiety [Unknown]

NARRATIVE: CASE EVENT DATE: 2015
